FAERS Safety Report 6862112-2 (Version None)
Quarter: 2010Q3

REPORT INFORMATION
  Report Type: 
  Country: None (occurrence: None)
  Receive Date: 20100719
  Receipt Date: 20100701
  Transmission Date: 20110219
  Serious: Yes (Other)
  Sender: FDA-Public Use
  Company Number: ACO_01212_2010

PATIENT
  Sex: Male

DRUGS (2)
  1. AMPYRA [Suspect]
     Indication: PRODUCT USED FOR UNKNOWN INDICATION
     Dosage: DF
     Dates: start: 20100501, end: 20100611
  2. TYSABRI [Suspect]
     Indication: MULTIPLE SCLEROSIS
     Dosage: DF
     Dates: start: 20071130

REACTIONS (3)
  - CONVULSION [None]
  - LOSS OF CONSCIOUSNESS [None]
  - SYNCOPE [None]
